FAERS Safety Report 7601570-2 (Version None)
Quarter: 2011Q3

REPORT INFORMATION
  Report Type: 
  Country: None (occurrence: None)
  Receive Date: 20110711
  Receipt Date: 20110629
  Transmission Date: 20111222
  Serious: Yes (Other)
  Sender: FDA-Public Use
  Company Number: PHHY2011AU58598

PATIENT
  Age: 61 Year
  Sex: Female

DRUGS (3)
  1. WARFARIN SODIUM [Concomitant]
  2. ZOLEDRONOC ACID [Suspect]
     Dosage: UNK
     Route: 042
     Dates: start: 20100101
  3. ZOLEDRONOC ACID [Suspect]
     Indication: METASTASES TO BONE
     Dosage: 5 MG, UNK
     Route: 042
     Dates: start: 20090101

REACTIONS (2)
  - BRUXISM [None]
  - TOOTH LOSS [None]
